FAERS Safety Report 21142820 (Version 1)
Quarter: 2022Q3

REPORT INFORMATION
  Report Type: Spontaneous
  Country: US (occurrence: None)
  Receive Date: 20220728
  Receipt Date: 20220728
  Transmission Date: 20221026
  Serious: Yes (Other)
  Sender: FDA-Public Use
  Company Number: None

PATIENT
  Sex: Female
  Weight: 121.5 kg

DRUGS (22)
  1. DUPIXENT [Suspect]
     Active Substance: DUPILUMAB
     Indication: Dermatitis atopic
     Dosage: FREQUENCY : EVERY OTHER WEEK;?
     Route: 058
     Dates: start: 20220324
  2. Bydureon subq [Concomitant]
  3. Tresiba subq [Concomitant]
  4. MIRALAX [Concomitant]
     Active Substance: POLYETHYLENE GLYCOL 3350
  5. BENEFIBER [Concomitant]
     Active Substance: STARCH, WHEAT
  6. VITAMIN B12 [Concomitant]
     Active Substance: CYANOCOBALAMIN
  7. biotin capsule [Concomitant]
  8. VITAMINS [Concomitant]
     Active Substance: VITAMINS
  9. VITAMIN D3 [Concomitant]
     Active Substance: CHOLECALCIFEROL
  10. B complex vitamin [Concomitant]
  11. FENOFIBRATE [Concomitant]
     Active Substance: FENOFIBRATE
  12. LOSARTAN [Concomitant]
     Active Substance: LOSARTAN
  13. levothyroxine 175 mcg [Concomitant]
  14. OMEPRAZOLE [Concomitant]
     Active Substance: OMEPRAZOLE
  15. BACLOFEN [Concomitant]
     Active Substance: BACLOFEN
  16. LORAZEPAM [Concomitant]
     Active Substance: LORAZEPAM
  17. HYDROXYCHLOROQUINE [Concomitant]
     Active Substance: HYDROXYCHLOROQUINE
  18. FLUOXETINE [Concomitant]
     Active Substance: FLUOXETINE HYDROCHLORIDE
  19. PIMECROLIMUS [Concomitant]
     Active Substance: PIMECROLIMUS
  20. Nystop external powder [Concomitant]
  21. Opxelura topical [Concomitant]
  22. dicyclomine 10 mg [Concomitant]

REACTIONS (2)
  - Dermatitis atopic [None]
  - Vision blurred [None]
